FAERS Safety Report 11050219 (Version 1)
Quarter: 2015Q2

REPORT INFORMATION
  Report Type: Spontaneous
  Country: US (occurrence: US)
  Receive Date: 20150421
  Receipt Date: 20150421
  Transmission Date: 20150821
  Serious: No
  Sender: FDA-Public Use
  Company Number: US-EMD SERONO-8020719

PATIENT
  Age: 38 Year
  Sex: Female

DRUGS (1)
  1. REBIF [Suspect]
     Active Substance: INTERFERON BETA-1A
     Indication: RELAPSING-REMITTING MULTIPLE SCLEROSIS
     Route: 058

REACTIONS (8)
  - Flushing [Unknown]
  - Injection site pain [Unknown]
  - Injection site swelling [Unknown]
  - Influenza like illness [Unknown]
  - Injection site discomfort [Unknown]
  - Asthenia [Unknown]
  - Alopecia [Unknown]
  - Injection site erythema [Unknown]
